FAERS Safety Report 4940239-X (Version None)
Quarter: 2006Q1

REPORT INFORMATION
  Report Type: 
  Country: None (occurrence: None)
  Receive Date: 20060310
  Receipt Date: 20060301
  Transmission Date: 20060701
  Serious: Yes (Hospitalization)
  Sender: FDA-Public Use
  Company Number: US-MERCK-0603USA00506

PATIENT
  Age: 49 Year
  Sex: Male
  Weight: 77 kg

DRUGS (2)
  1. VIOXX [Suspect]
     Indication: ARTHRITIS
     Route: 048
     Dates: start: 20020101, end: 20040101
  2. DARVOCET [Concomitant]
     Route: 065

REACTIONS (4)
  - DEPRESSION [None]
  - GASTRIC ULCER [None]
  - HEART INJURY [None]
  - MYOCARDIAL INFARCTION [None]
